FAERS Safety Report 9157420 (Version 1)
Quarter: 2013Q1

REPORT INFORMATION
  Report Type: Spontaneous
  Country: US (occurrence: None)
  Receive Date: 20130308
  Receipt Date: 20130308
  Transmission Date: 20140127
  Serious: No
  Sender: FDA-Public Use
  Company Number: None

PATIENT
  Age: 32 Year
  Sex: Female
  Weight: 115.03 kg

DRUGS (2)
  1. BUPROPION [Suspect]
     Indication: DEPRESSION
     Dosage: 150 SR BID
     Dates: start: 20120215
  2. WELLBUTRIN [Suspect]
     Indication: DEPRESSION
     Dosage: 200 SR BID
     Dates: start: 20120713

REACTIONS (2)
  - Product substitution issue [None]
  - Drug effect decreased [None]
